FAERS Safety Report 9394025 (Version 1)
Quarter: 2013Q3

REPORT INFORMATION
  Report Type: Spontaneous
  Country: ES (occurrence: ES)
  Receive Date: 20130710
  Receipt Date: 20130710
  Transmission Date: 20140515
  Serious: Yes (Death)
  Sender: FDA-Public Use
  Company Number: ES-ELI_LILLY_AND_COMPANY-ES201307002515

PATIENT
  Sex: 0

DRUGS (5)
  1. GEMCITABINE HYDROCHLORIDE [Suspect]
     Indication: NON-SMALL CELL LUNG CANCER
     Dosage: 1200 MG/M2, DAYS 1 AND 8
  2. DOCETAXEL [Suspect]
     Indication: NON-SMALL CELL LUNG CANCER
     Dosage: 20 MG/M2, DAYS 1 AND 8
  3. DOCETAXEL [Suspect]
     Dosage: 40 MG/M2, DAYS 1 AND 8
  4. CARBOPLATIN [Concomitant]
     Indication: NON-SMALL CELL LUNG CANCER
  5. DEXAMETHASONE [Concomitant]

REACTIONS (1)
  - Haemoptysis [Fatal]
